FAERS Safety Report 25584385 (Version 1)
Quarter: 2025Q3

REPORT INFORMATION
  Report Type: Spontaneous
  Country: US (occurrence: US)
  Receive Date: 20250721
  Receipt Date: 20250721
  Transmission Date: 20251020
  Serious: No
  Sender: SANOFI AVENTIS
  Company Number: US-SANOFI-02592293

PATIENT
  Age: 90 Year
  Sex: Female
  Weight: 73 kg

DRUGS (1)
  1. CEREZYME [Suspect]
     Active Substance: IMIGLUCERASE
     Indication: Gaucher^s disease type I
     Dosage: 4400 MG, QOW
     Route: 042
     Dates: end: 20250611

REACTIONS (1)
  - Illness [Unknown]

NARRATIVE: CASE EVENT DATE: 20250101
